FAERS Safety Report 6790992-8 (Version None)
Quarter: 2010Q2

REPORT INFORMATION
  Report Type: 
  Country: None (occurrence: None)
  Receive Date: 20100624
  Receipt Date: 20100618
  Transmission Date: 20101027
  Serious: No
  Sender: FDA-Public Use
  Company Number: US-JNJFOC-20100606718

PATIENT
  Age: 18 Year
  Sex: Male
  Weight: 68.04 kg

DRUGS (2)
  1. INVEGA [Suspect]
     Indication: SCHIZOPHRENIA
     Route: 048
  2. UNKNOWN MEDICATION [Concomitant]
     Indication: MUSCLE TWITCHING

REACTIONS (1)
  - SKIN STRIAE [None]
